FAERS Safety Report 21587093 (Version 1)
Quarter: 2022Q4

REPORT INFORMATION
  Report Type: Spontaneous
  Country: FR (occurrence: FR)
  Receive Date: 20221114
  Receipt Date: 20221114
  Transmission Date: 20230113
  Serious: Yes (Hospitalization, Other)
  Sender: FDA-Public Use
  Company Number: FR-PIRAMAL CRITICAL CARE LIMITED-2022-PEL-000052

PATIENT

DRUGS (9)
  1. SEVOFLURANE [Suspect]
     Active Substance: SEVOFLURANE
     Indication: General anaesthesia
     Dosage: 1 DOSAGE FORM, SINGLE
     Route: 055
     Dates: start: 20210831, end: 20210831
  2. REMIFENTANIL [Suspect]
     Active Substance: REMIFENTANIL
     Indication: General anaesthesia
     Dosage: 1 DOSAGE FORM, SINGLE
     Route: 042
     Dates: start: 20210831, end: 20210831
  3. MIDAZOLAM [Suspect]
     Active Substance: MIDAZOLAM
     Indication: General anaesthesia
     Dosage: 1 DOSAGE FORM, SINGLE
     Route: 042
     Dates: start: 20210831, end: 20210831
  4. BETADINE [Suspect]
     Active Substance: POVIDONE-IODINE
     Indication: Infection prophylaxis
     Dosage: 1 DOSAGE FORM, SINGLE
     Route: 003
     Dates: start: 20210831, end: 20210831
  5. ROCURONIUM BROMIDE [Suspect]
     Active Substance: ROCURONIUM BROMIDE
     Indication: General anaesthesia
     Dosage: 1 DOSAGE FORM, SINGLE
     Route: 042
     Dates: start: 20210831, end: 20210831
  6. KETAMINE [Suspect]
     Active Substance: KETAMINE
     Indication: General anaesthesia
     Dosage: 1 DOSAGE FORM, SINGLE
     Route: 042
     Dates: start: 20210831, end: 20210831
  7. CHLORHEXIDINE [Suspect]
     Active Substance: CHLORHEXIDINE
     Indication: Infection prophylaxis
     Dosage: 1 DOSAGE FORM, SINGLE
     Route: 003
     Dates: start: 20210831, end: 20210831
  8. LIDOCAINE [Concomitant]
     Active Substance: LIDOCAINE
     Indication: Pain prophylaxis
     Dosage: 1 DOSAGE FORM, SINGLE
     Route: 065
     Dates: start: 20210831, end: 20210831
  9. PROPOFOL [Concomitant]
     Active Substance: PROPOFOL
     Indication: General anaesthesia
     Dosage: 1 DOSAGE FORM, SINGLE
     Route: 042
     Dates: start: 20210831, end: 20210831

REACTIONS (1)
  - Anaphylactic shock [Recovered/Resolved]

NARRATIVE: CASE EVENT DATE: 20210831
